FAERS Safety Report 5121430-9 (Version None)
Quarter: 2006Q4

REPORT INFORMATION
  Report Type: 
  Country: None (occurrence: None)
  Receive Date: 20061002
  Receipt Date: 20060919
  Transmission Date: 20070319
  Serious: Yes (Hospitalization)
  Sender: FDA-Public Use
  Company Number: 14057

PATIENT
  Age: 53 Year
  Sex: Female
  Weight: 83.7 kg

DRUGS (16)
  1. CYTARABINE [Suspect]
     Indication: ACUTE MYELOID LEUKAEMIA
  2. ETOPOSIDE [Suspect]
     Indication: ACUTE MYELOID LEUKAEMIA
  3. ZOFRAN [Concomitant]
  4. SINGULAIR [Concomitant]
  5. MITOXANTRONE [Suspect]
     Indication: ACUTE MYELOID LEUKAEMIA
  6. CEP-701 [Suspect]
     Indication: ACUTE MYELOID LEUKAEMIA
     Dosage: 80 MG BID PO
     Route: 048
     Dates: start: 20060327, end: 20060501
  7. ATROVENT [Concomitant]
  8. ADVAIR DISKUS 100/50 [Concomitant]
  9. WELLBUTRIN [Concomitant]
  10. LEXAPRO [Concomitant]
  11. LEVOXYL [Concomitant]
  12. NEXIUM [Concomitant]
  13. PROAMATINE [Concomitant]
  14. LEVAQUIN [Concomitant]
  15. COMPAZINE [Concomitant]
  16. FLORINEF [Concomitant]

REACTIONS (5)
  - CARDIAC FAILURE CONGESTIVE [None]
  - CARDIOMEGALY [None]
  - DYSPNOEA [None]
  - EJECTION FRACTION DECREASED [None]
  - TRANSAMINASES INCREASED [None]
